FAERS Safety Report 5256696-8 (Version None)
Quarter: 2007Q1

REPORT INFORMATION
  Report Type: 
  Country: None (occurrence: None)
  Receive Date: 20070306
  Receipt Date: 20070222
  Transmission Date: 20070707
  Serious: Yes (Other)
  Sender: FDA-Public Use
  Company Number: DE-PFIZER INC-2007010010

PATIENT
  Age: 52 Year
  Sex: Female

DRUGS (2)
  1. SUTENT [Suspect]
     Indication: BREAST CANCER METASTATIC
     Dosage: DAILY DOSE:50MG
     Route: 048
  2. DEXAMETHASONE [Concomitant]

REACTIONS (2)
  - LEUKOPENIA [None]
  - TRANSAMINASES INCREASED [None]
